FAERS Safety Report 14626433 (Version 1)
Quarter: 2018Q1

REPORT INFORMATION
  Report Type: Report from Study
  Country: GB (occurrence: GB)
  Receive Date: 20180312
  Receipt Date: 20180312
  Transmission Date: 20180509
  Serious: Yes (Other)
  Sender: FDA-Public Use
  Company Number: PHHY2018GB022235

PATIENT
  Age: 57 Year
  Sex: Male

DRUGS (1)
  1. COSENTYX [Suspect]
     Active Substance: SECUKINUMAB
     Indication: ANKYLOSING SPONDYLITIS
     Dosage: 150 MG, QW
     Route: 065
     Dates: start: 20180130, end: 201802

REACTIONS (9)
  - Heart rate increased [Unknown]
  - Chills [Not Recovered/Not Resolved]
  - Blood pressure increased [Unknown]
  - Oropharyngeal pain [Unknown]
  - Malaise [Unknown]
  - Pain in extremity [Unknown]
  - Feeling hot [Unknown]
  - Influenza like illness [Not Recovered/Not Resolved]
  - Rhinorrhoea [Unknown]

NARRATIVE: CASE EVENT DATE: 20180130
